FAERS Safety Report 4565072-2 (Version None)
Quarter: 2005Q1

REPORT INFORMATION
  Report Type: 
  Country: None (occurrence: None)
  Receive Date: 20050131
  Receipt Date: 20041027
  Transmission Date: 20050727
  Serious: Yes (Hospitalization)
  Sender: FDA-Public Use
  Company Number: GB-BRISTOL-MYERS SQUIBB COMPANY-12746491

PATIENT
  Age: 62 Year
  Sex: Female

DRUGS (5)
  1. DOXORUBICIN HCL [Suspect]
     Indication: ENDOMETRIAL CANCER
     Dosage: THERAPY DATES: 05-JUL TO 04-OCT-2004
     Route: 042
     Dates: start: 20041004, end: 20041004
  2. PACLITAXEL [Suspect]
     Indication: ENDOMETRIAL CANCER
     Dosage: THERAPY DATES: 05-JUL TO 04-OCT-2004
     Route: 042
     Dates: start: 20041004, end: 20041004
  3. CISPLATIN [Suspect]
     Indication: ENDOMETRIAL CANCER
     Dosage: THERAPY DATES: 05-JUL TO 04-OCT-2004
     Route: 042
     Dates: start: 20041004, end: 20041004
  4. CO-DYDRAMOL [Concomitant]
     Dates: start: 20041007, end: 20041026
  5. DEXAMETHASONE [Concomitant]
     Dates: start: 20041025, end: 20041026

REACTIONS (2)
  - INTESTINAL OBSTRUCTION [None]
  - VOMITING [None]
